FAERS Safety Report 16271917 (Version 3)
Quarter: 2019Q2

REPORT INFORMATION
  Report Type: Spontaneous
  Country: JP (occurrence: JP)
  Receive Date: 20190503
  Receipt Date: 20190610
  Transmission Date: 20190711
  Serious: Yes (Death, Life-Threatening, Hospitalization, Disabling, Other)
  Sender: FDA-Public Use
  Company Number: JP-NOVOPROD-660160

PATIENT
  Age: 11 Year
  Sex: Male
  Weight: 27.9 kg

DRUGS (2)
  1. NORDITROPIN [Suspect]
     Active Substance: SOMATROPIN
     Indication: GROWTH HORMONE DEFICIENCY
     Dosage: 0.8 TO 1.4MG X 6/WEEK
     Route: 058
     Dates: start: 20170327, end: 20181220
  2. SODIUM VALPROATE [Suspect]
     Active Substance: VALPROATE SODIUM
     Indication: EPILEPSY
     Dosage: 1.7G TO 1.8G/DAY
     Route: 048
     Dates: start: 20140326, end: 20181022

REACTIONS (4)
  - Anaplastic meningioma [Fatal]
  - Metastases to spinal cord [Fatal]
  - Subdural empyema [Unknown]
  - Pneumonia aspiration [Unknown]

NARRATIVE: CASE EVENT DATE: 20181022
